FAERS Safety Report 6236601-8 (Version None)
Quarter: 2009Q2

REPORT INFORMATION
  Report Type: 
  Country: None (occurrence: None)
  Receive Date: 20090619
  Receipt Date: 20090525
  Transmission Date: 20091009
  Serious: Yes (Hospitalization)
  Sender: FDA-Public Use
  Company Number: AU-PFIZER INC-2009217739

PATIENT

DRUGS (2)
  1. XANAX [Suspect]
  2. ENDEP [Concomitant]

REACTIONS (3)
  - CONFUSIONAL STATE [None]
  - GLASGOW COMA SCALE ABNORMAL [None]
  - OVERDOSE [None]
